FAERS Safety Report 9660875 (Version 1)
Quarter: 2013Q4

REPORT INFORMATION
  Report Type: Spontaneous
  Country: US (occurrence: US)
  Receive Date: 20131031
  Receipt Date: 20131031
  Transmission Date: 20140711
  Serious: Yes (Other)
  Sender: FDA-Public Use
  Company Number: US-PFIZER INC-2013307486

PATIENT
  Age: 54 Year
  Sex: Male
  Weight: 63.49 kg

DRUGS (2)
  1. RAPAMUNE [Suspect]
     Indication: RENAL DISORDER
     Dosage: 4 MG 2X/DAY,(1MG X 4 TABLETS)
     Route: 048
     Dates: start: 20120214, end: 20130910
  2. PROGRAF [Concomitant]
     Dosage: 3MG (1MG X 3) 2X/DAY
     Dates: end: 2013

REACTIONS (1)
  - Renal failure [Unknown]
